FAERS Safety Report 10548448 (Version 1)
Quarter: 2014Q4

REPORT INFORMATION
  Report Type: Spontaneous
  Country: US (occurrence: None)
  Receive Date: 20141024
  Receipt Date: 20141024
  Transmission Date: 20150529
  Serious: Yes (Hospitalization)
  Sender: FDA-Public Use
  Company Number: INT_00493_2014

PATIENT

DRUGS (3)
  1. DOVITINIB [Suspect]
     Active Substance: DOVITINIB LACTATE
     Indication: NEOPLASM
     Dosage: CYCLE 1, 2 WEEKS 1 DAY UNTIL NOT CONTINUING
     Route: 048
  2. CISPLATIN (HQ SPECIALTY) [Suspect]
     Active Substance: CISPLATIN
     Indication: NEOPLASM
     Dosage: ON DAY 1 OF A 21 DAY CYCLE, 2 CYCLES
     Route: 042
  3. GEMCITABINE [Suspect]
     Active Substance: GEMCITABINE\GEMCITABINE HYDROCHLORIDE
     Indication: NEOPLASM
     Dosage: ON DAY 1 AND 8 OF 21 DAY CYCLE, 2 CYCLES
     Route: 042

REACTIONS (3)
  - Peripheral artery thrombosis [None]
  - Neutropenia [None]
  - Deep vein thrombosis [None]
